FAERS Safety Report 15735180 (Version 2)
Quarter: 2018Q4

REPORT INFORMATION
  Report Type: Spontaneous
  Country: US (occurrence: US)
  Receive Date: 20181218
  Receipt Date: 20181224
  Transmission Date: 20190205
  Serious: Yes (Hospitalization, Other)
  Sender: FDA-Public Use
  Company Number: US-JNJFOC-20181211056

PATIENT
  Age: 55 Year
  Sex: Male
  Weight: 111.13 kg

DRUGS (1)
  1. AVEENO ECZEMA THERAPY MOISTURIZING [Suspect]
     Active Substance: OATMEAL
     Indication: DRY SKIN PROPHYLAXIS
     Dosage: DOSAGE: APPLIED LIBERALLY TO ENTIRE BODY, ARMS, LEGS, CHEST, AND TOP OF SHOULDERS. ONCE
     Route: 061
     Dates: start: 20181117, end: 20181117

REACTIONS (1)
  - Burns fourth degree [Not Recovered/Not Resolved]

NARRATIVE: CASE EVENT DATE: 20181117
